FAERS Safety Report 8139347-4 (Version None)
Quarter: 2012Q1

REPORT INFORMATION
  Report Type: 
  Country: None (occurrence: None)
  Receive Date: 20120215
  Receipt Date: 20110213
  Transmission Date: 20120608
  Serious: No
  Sender: FDA-Public Use
  Company Number: US-MYLANLABS-2011S1003039

PATIENT
  Age: 10 Month

DRUGS (1)
  1. IPRATROPIUM BROMIDE [Suspect]

REACTIONS (1)
  - ACCIDENTAL EXPOSURE [None]
